FAERS Safety Report 18538030 (Version 1)
Quarter: 2020Q4

REPORT INFORMATION
  Report Type: Other
  Country: US (occurrence: US)
  Receive Date: 20201123
  Receipt Date: 20201123
  Transmission Date: 20210114
  Serious: Yes (Other)
  Sender: FDA-Public Use
  Company Number: US-INVATECH-000031

PATIENT
  Sex: Female
  Weight: 28.7 kg

DRUGS (5)
  1. CALCITRIOL. [Suspect]
     Active Substance: CALCITRIOL
     Indication: PRODUCT USED FOR UNKNOWN INDICATION
     Dosage: AGE 1 YEAR TO AGE 9.5 YEARS, SHE WAS TREATED WITH VARIOUS DOSES OF CALCITRIOL
     Route: 065
  2. CALCIUM CARBONATE. [Suspect]
     Active Substance: CALCIUM CARBONATE
     Indication: PRODUCT USED FOR UNKNOWN INDICATION
     Dosage: ELEMENTAL CALCIUM DAILY
     Route: 065
  3. CALCIUM CARBONATE. [Suspect]
     Active Substance: CALCIUM CARBONATE
     Indication: HYPOCALCAEMIA
     Dosage: CA, BASELINE 2000 MG AT 9.4YR
     Route: 065
  4. HYDROCHLOROTHIAZIDE. [Concomitant]
     Active Substance: HYDROCHLOROTHIAZIDE
     Indication: PRODUCT USED FOR UNKNOWN INDICATION
     Route: 065
  5. CALCITRIOL. [Suspect]
     Active Substance: CALCITRIOL
     Indication: HYPOCALCAEMIA
     Dosage: 0.5 MCG BASELINE AT 9.4YR
     Route: 065

REACTIONS (4)
  - Hypercalciuria [Recovered/Resolved]
  - Tetany [Recovered/Resolved]
  - Condition aggravated [Unknown]
  - Nephrocalcinosis [Not Recovered/Not Resolved]
